FAERS Safety Report 9945845 (Version 1)
Quarter: 2014Q1

REPORT INFORMATION
  Report Type: Spontaneous
  Country: GB (occurrence: GB)
  Receive Date: 20140303
  Receipt Date: 20140303
  Transmission Date: 20141002
  Serious: Yes (Hospitalization)
  Sender: FDA-Public Use
  Company Number: PHHY2014GB022362

PATIENT
  Age: 81 Year
  Sex: Female
  Weight: 61 kg

DRUGS (14)
  1. DOXYCYCLINE [Suspect]
     Indication: PNEUMONIA
     Dosage: 100 MG, QD, MORNING
     Route: 048
     Dates: start: 20140206
  2. PREDNISOLONE [Suspect]
     Indication: PNEUMONIA
     Dosage: 30 MG, QD, MORNING
     Route: 048
     Dates: start: 20140205, end: 20140212
  3. AMLODIPINE [Concomitant]
  4. ASPIRIN [Concomitant]
  5. CO-CODAMOL [Concomitant]
  6. FERROUS FUMARATE [Concomitant]
  7. ACIDO FOLICO [Concomitant]
  8. LANSOPRAZOLE [Concomitant]
     Dosage: 15 MG, QD
  9. LANSOPRAZOLE [Concomitant]
     Dosage: 30 MG, QD
  10. RAMIPRIL [Concomitant]
  11. SALBUTAMOL [Concomitant]
  12. SERETIDE [Concomitant]
  13. SIMVASTATIN [Concomitant]
  14. TIOTROPIUM [Concomitant]

REACTIONS (1)
  - Haemoglobin decreased [Unknown]
